FAERS Safety Report 12593275 (Version 1)
Quarter: 2016Q3

REPORT INFORMATION
  Report Type: Spontaneous
  Country: US (occurrence: US)
  Receive Date: 20160726
  Receipt Date: 20160726
  Transmission Date: 20161109
  Serious: No
  Sender: FDA-Public Use
  Company Number: US-ABBVIE-16P-163-1553086-00

PATIENT

DRUGS (2)
  1. SYNTHROID [Suspect]
     Active Substance: LEVOTHYROXINE SODIUM
     Route: 048
  2. SYNTHROID [Suspect]
     Active Substance: LEVOTHYROXINE SODIUM
     Indication: HYPOTHYROIDISM
     Route: 048

REACTIONS (10)
  - Fatigue [Recovered/Resolved]
  - Sleep disorder [Recovered/Resolved]
  - Hunger [Recovered/Resolved]
  - Product label confusion [Unknown]
  - Gastrointestinal disorder [Recovered/Resolved]
  - Alopecia [Recovered/Resolved]
  - Tinnitus [Recovered/Resolved]
  - Somnolence [Recovered/Resolved]
  - Feeling jittery [Recovered/Resolved]
  - Mood swings [Recovered/Resolved]
